FAERS Safety Report 24043254 (Version 1)
Quarter: 2024Q3

REPORT INFORMATION
  Report Type: Spontaneous
  Country: CA (occurrence: CA)
  Receive Date: 20240702
  Receipt Date: 20240702
  Transmission Date: 20241017
  Serious: Yes (Life-Threatening, Hospitalization)
  Sender: PFIZER
  Company Number: CA-PFIZER INC-202400204329

PATIENT
  Age: 16 Year
  Sex: Female

DRUGS (6)
  1. VINCRISTINE SULFATE [Suspect]
     Active Substance: VINCRISTINE SULFATE
     Indication: Chemotherapy
     Dosage: UNK
  2. ADCETRIS [Suspect]
     Active Substance: BRENTUXIMAB VEDOTIN
     Indication: Chemotherapy
     Dosage: UNK
  3. CYCLOPHOSPHAMIDE [Suspect]
     Active Substance: CYCLOPHOSPHAMIDE
     Indication: Chemotherapy
     Dosage: UNK
  4. DOXORUBICIN [Suspect]
     Active Substance: DOXORUBICIN
     Dosage: UNK
  5. ETOPOSIDE [Suspect]
     Active Substance: ETOPOSIDE
     Indication: Chemotherapy
     Dosage: UNK
  6. PREDNISONE [Suspect]
     Active Substance: PREDNISONE
     Indication: Chemotherapy
     Dosage: UNK

REACTIONS (1)
  - Febrile neutropenia [Recovered/Resolved]
